FAERS Safety Report 7627128-7 (Version None)
Quarter: 2011Q3

REPORT INFORMATION
  Report Type: 
  Country: None (occurrence: None)
  Receive Date: 20110714
  Receipt Date: 20110705
  Transmission Date: 20111222
  Serious: Yes (Death)
  Sender: FDA-Public Use
  Company Number: FK201101341

PATIENT
  Age: 57 Year
  Sex: Female

DRUGS (1)
  1. CYTARABINE [Suspect]
     Indication: ACUTE MYELOID LEUKAEMIA
     Dosage: 3000 MG/M2

REACTIONS (3)
  - ENTEROCOCCAL INFECTION [None]
  - SEPTIC SHOCK [None]
  - ENTEROCOLITIS [None]
